FAERS Safety Report 8261059-7 (Version None)
Quarter: 2012Q2

REPORT INFORMATION
  Report Type: 
  Country: None (occurrence: None)
  Receive Date: 20120405
  Receipt Date: 20120329
  Transmission Date: 20120825
  Serious: Yes (Other)
  Sender: FDA-Public Use
  Company Number: US-VERTEX PHARMACEUTICALS INC.-AE-2012-004593

PATIENT
  Sex: Male
  Weight: 63.56 kg

DRUGS (7)
  1. AMBIEN [Concomitant]
  2. DICLOFENAC SODIUM [Concomitant]
  3. INCIVEK [Suspect]
     Indication: HEPATITIS C
     Route: 048
     Dates: start: 20120208
  4. RIBAVIRIN [Concomitant]
     Indication: HEPATITIS C
     Route: 048
     Dates: start: 20120208
  5. PRAVASTATIN [Concomitant]
  6. PEGASYS [Concomitant]
     Indication: HEPATITIS C
     Route: 058
     Dates: start: 20120208
  7. AZITHROMYCIN [Concomitant]

REACTIONS (4)
  - DIARRHOEA [None]
  - HAEMORRHOIDS [None]
  - PHOTOPHOBIA [None]
  - RASH PAPULAR [None]
